FAERS Safety Report 10236464 (Version 1)
Quarter: 2014Q2

REPORT INFORMATION
  Report Type: Report from Study
  Country: BR (occurrence: BR)
  Receive Date: 20140613
  Receipt Date: 20140613
  Transmission Date: 20141212
  Serious: Yes (Hospitalization)
  Sender: FDA-Public Use
  Company Number: BR-BRISTOL-MYERS SQUIBB COMPANY-20994273

PATIENT
  Age: 59 Year
  Sex: Male

DRUGS (2)
  1. ERBITUX SOLN FOR INF [Suspect]
     Indication: HEAD AND NECK CANCER
     Dosage: LAST INFUSION: 30MAY14
     Dates: start: 201404
  2. PHENYTOIN [Concomitant]
     Indication: EPILEPSY

REACTIONS (7)
  - Renal failure [Unknown]
  - Infection [Unknown]
  - Pyrexia [Unknown]
  - Immunodeficiency [Unknown]
  - Skin haemorrhage [Recovering/Resolving]
  - Erythema [Recovering/Resolving]
  - Peripheral swelling [Recovering/Resolving]
